FAERS Safety Report 8081324-6 (Version None)
Quarter: 2012Q1

REPORT INFORMATION
  Report Type: 
  Country: None (occurrence: None)
  Receive Date: 20120130
  Receipt Date: 20111006
  Transmission Date: 20120608
  Serious: No
  Sender: FDA-Public Use
  Company Number: US-MUTUAL PHARMACEUTICAL COMPANY, INC.-CLCY20110140

PATIENT
  Sex: Male
  Weight: 72.64 kg

DRUGS (2)
  1. COLCRYS [Suspect]
     Indication: PERICARDITIS
     Route: 048
     Dates: start: 20110101
  2. NONE [Concomitant]

REACTIONS (3)
  - FATIGUE [None]
  - OFF LABEL USE [None]
  - EXERCISE TOLERANCE DECREASED [None]
